FAERS Safety Report 6402241-0 (Version None)
Quarter: 2009Q4

REPORT INFORMATION
  Report Type: 
  Country: None (occurrence: None)
  Receive Date: 20091013
  Receipt Date: 20091005
  Transmission Date: 20100525
  Serious: Yes (Other)
  Sender: FDA-Public Use
  Company Number: DSA_41795_2009

PATIENT
  Sex: Female

DRUGS (5)
  1. XENAZINE [Suspect]
     Indication: HUNTINGTON'S CHOREA
     Dosage: (12.5 MG BID)
     Dates: start: 20090911, end: 20090925
  2. ALPRAZOLAM [Concomitant]
  3. SYNTHROID [Concomitant]
  4. ZYRTEC [Suspect]
  5. AMLODIPINE [Concomitant]

REACTIONS (2)
  - GASTROINTESTINAL HAEMORRHAGE [None]
  - SKIN DISCOLOURATION [None]
